FAERS Safety Report 20921309 (Version 3)
Quarter: 2022Q3

REPORT INFORMATION
  Report Type: Report from Study
  Country: DE (occurrence: DE)
  Receive Date: 20220606
  Receipt Date: 20220913
  Transmission Date: 20221026
  Serious: Yes (Other)
  Sender: FDA-Public Use
  Company Number: DE-TAKEDA-2022TUS016472

PATIENT
  Sex: Male
  Weight: 80 kg

DRUGS (4)
  1. VEDOLIZUMAB [Suspect]
     Active Substance: VEDOLIZUMAB
     Indication: Crohn^s disease
     Dosage: 300 MILLIGRAM
     Route: 042
     Dates: start: 20210415
  2. VEDOLIZUMAB [Suspect]
     Active Substance: VEDOLIZUMAB
     Indication: Colitis ulcerative
  3. VEDOLIZUMAB [Suspect]
     Active Substance: VEDOLIZUMAB
     Indication: Crohn^s disease
     Dosage: UNK
     Route: 065
  4. MESALAMINE [Concomitant]
     Active Substance: MESALAMINE
     Dosage: UNK
     Dates: start: 20191001

REACTIONS (2)
  - Crohn^s disease [Recovered/Resolved]
  - Off label use [Unknown]

NARRATIVE: CASE EVENT DATE: 20220318
